FAERS Safety Report 15887420 (Version 1)
Quarter: 2019Q1

REPORT INFORMATION
  Report Type: Spontaneous
  Country: FR (occurrence: FR)
  Receive Date: 20190130
  Receipt Date: 20190130
  Transmission Date: 20190417
  Serious: Yes (Death)
  Sender: FDA-Public Use
  Company Number: FR-TEVA-2019-FR-1003411

PATIENT
  Age: 72 Year
  Sex: Female
  Weight: 70 kg

DRUGS (12)
  1. UMULINE [Concomitant]
     Active Substance: INSULIN HUMAN
  2. ATORVASTATINE [Concomitant]
     Active Substance: ATORVASTATIN
  3. MORPHINE [Concomitant]
     Active Substance: MORPHINE
  4. BISOPROLOL (FUMARATE ACIDE DE) [Concomitant]
     Active Substance: BISOPROLOL FUMARATE
  5. KARDEGIC [Concomitant]
     Active Substance: ASPIRIN DL-LYSINE
  6. AMLODIPINE [Suspect]
     Active Substance: AMLODIPINE BESYLATE
     Route: 065
  7. TAZOCILLINE [Suspect]
     Active Substance: PIPERACILLIN SODIUM\TAZOBACTAM SODIUM
     Indication: OSTEITIS
     Dosage: 8 GRAM DAILY;
     Route: 042
     Dates: start: 20181128, end: 20181212
  8. PARACETAMOL [Concomitant]
     Active Substance: ACETAMINOPHEN
  9. PANTOPRAZOLE [Concomitant]
     Active Substance: PANTOPRAZOLE
  10. VANCOMYCINE [Suspect]
     Active Substance: VANCOMYCIN
     Indication: OSTEITIS
     Dosage: 1.5 GRAM DAILY;
     Route: 042
     Dates: start: 20181128, end: 20181218
  11. CIPROFLOXACINE [Suspect]
     Active Substance: CIPROFLOXACIN
     Indication: OSTEITIS
     Route: 042
     Dates: start: 20181128, end: 20181217
  12. PREGABALINE [Concomitant]
     Active Substance: PREGABALIN

REACTIONS (1)
  - Toxic epidermal necrolysis [Fatal]

NARRATIVE: CASE EVENT DATE: 20181218
